FAERS Safety Report 12369032 (Version 2)
Quarter: 2016Q2

REPORT INFORMATION
  Report Type: Report from Study
  Country: US (occurrence: US)
  Receive Date: 20160513
  Receipt Date: 20160525
  Transmission Date: 20160815
  Serious: Yes (Hospitalization, Other)
  Sender: FDA-Public Use
  Company Number: US-ABBVIE-16K-163-1622458-00

PATIENT
  Age: 45 Year
  Sex: Female

DRUGS (1)
  1. HUMIRA [Suspect]
     Active Substance: ADALIMUMAB
     Indication: COLITIS ULCERATIVE
     Route: 058
     Dates: start: 201310

REACTIONS (6)
  - Plantar fasciitis [Recovered/Resolved]
  - Nerve compression [Recovered/Resolved]
  - Procedural pain [Recovered/Resolved]
  - Food poisoning [Recovered/Resolved]
  - Psoriasis [Not Recovered/Not Resolved]
  - Plantar fasciitis [Recovered/Resolved]

NARRATIVE: CASE EVENT DATE: 2014
